FAERS Safety Report 6282260-8 (Version None)
Quarter: 2009Q3

REPORT INFORMATION
  Report Type: 
  Country: None (occurrence: None)
  Receive Date: 20090721
  Receipt Date: 20090721
  Transmission Date: 20100115
  Serious: Yes (Other)
  Sender: FDA-Public Use
  Company Number: None

PATIENT
  Age: 63 Year
  Sex: Female
  Weight: 70.0807 kg

DRUGS (1)
  1. TOPAMAX [Suspect]
     Indication: HEADACHE
     Dosage: 100 MG ONCE BID BY MOUTH
     Route: 048
     Dates: start: 20030101

REACTIONS (4)
  - DRUG INEFFECTIVE [None]
  - EYE PAIN [None]
  - HEADACHE [None]
  - PRODUCT SUBSTITUTION ISSUE [None]
